FAERS Safety Report 4859905-X (Version None)
Quarter: 2005Q4

REPORT INFORMATION
  Report Type: 
  Country: None (occurrence: None)
  Receive Date: 20051215
  Receipt Date: 20051206
  Transmission Date: 20060501
  Serious: Yes (Hospitalization)
  Sender: FDA-Public Use
  Company Number: 2005-11-0546

PATIENT
  Age: 45 Year
  Sex: Female
  Weight: 89.8122 kg

DRUGS (11)
  1. INTEGRILIN [Suspect]
     Indication: CORONARY ANGIOPLASTY
     Dosage: 10.8 MG/HR INTRAVENOUS
     Route: 042
     Dates: start: 20051027
  2. LOVENOX [Suspect]
     Dosage: 1 MG/ KG SUBCUTANEOUS
     Route: 058
     Dates: start: 20051026, end: 20051027
  3. PLAVIX [Suspect]
     Dosage: 75 MG QD ORAL
     Route: 048
     Dates: start: 20051027
  4. ASPIRIN [Suspect]
     Dosage: 325 MG QD ORAL
     Route: 048
     Dates: start: 20051026
  5. LIPITOR [Concomitant]
  6. NAPROXEN [Concomitant]
  7. METOPROLOL SUCCINATE [Concomitant]
  8. PAXIL [Concomitant]
  9. HYDROCHLOROTHIAZIDE 20 MG [Concomitant]
  10. NEXIUM (ESOMEPRAZOLE) 40 MG [Concomitant]
  11. LISINOPRIL [Concomitant]

REACTIONS (6)
  - HAEMATOCRIT DECREASED [None]
  - HAEMOGLOBIN DECREASED [None]
  - INCISION SITE HAEMORRHAGE [None]
  - MALLORY-WEISS SYNDROME [None]
  - PLATELET COUNT DECREASED [None]
  - POST PROCEDURAL HAEMORRHAGE [None]
